FAERS Safety Report 4873936-5 (Version None)
Quarter: 2006Q1

REPORT INFORMATION
  Report Type: 
  Country: None (occurrence: None)
  Receive Date: 20060106
  Receipt Date: 20051229
  Transmission Date: 20060701
  Serious: Yes (Other)
  Sender: FDA-Public Use
  Company Number: DE-JNJFOC-20051103896

PATIENT
  Age: 48 Year
  Sex: Male

DRUGS (6)
  1. RISPERDAL [Suspect]
     Dosage: 5-0MG
     Route: 048
  2. RISPERDAL [Suspect]
     Indication: DEPRESSION
     Route: 048
  3. CIPRAMIL [Interacting]
     Indication: DRUG USE FOR UNKNOWN INDICATION
     Route: 048
  4. DOMINAL [Concomitant]
     Route: 048
  5. DOMINAL [Concomitant]
     Route: 048
  6. AKINETON [Concomitant]
     Dosage: MAXIMUM DOSE OF 8MG DAILY

REACTIONS (5)
  - AKATHISIA [None]
  - DRUG INTERACTION [None]
  - EXTRAPYRAMIDAL DISORDER [None]
  - MUSCLE RIGIDITY [None]
  - PARKINSONISM [None]
